FAERS Safety Report 23662885 (Version 3)
Quarter: 2025Q4

REPORT INFORMATION
  Report Type: Spontaneous
  Country: EU (occurrence: EU)
  Receive Date: 20240322
  Receipt Date: 20251223
  Transmission Date: 20260117
  Serious: Yes (Hospitalization, Other)
  Sender: RANBAXY
  Company Number: EU-SUN PHARMACEUTICAL INDUSTRIES LTD-2024R1-437354

PATIENT
  Sex: Female

DRUGS (1)
  1. PALIPERIDONE [Suspect]
     Active Substance: PALIPERIDONE
     Indication: Bipolar disorder
     Dosage: 100 MILLIGRAM
     Route: 030

REACTIONS (5)
  - Acute kidney injury [Unknown]
  - Dystonia [Unknown]
  - Sedation [Unknown]
  - Toxicity to various agents [Unknown]
  - Drug level above therapeutic [Unknown]
